FAERS Safety Report 6067273-3 (Version None)
Quarter: 2009Q1

REPORT INFORMATION
  Report Type: 
  Country: None (occurrence: None)
  Receive Date: 20090204
  Receipt Date: 20090204
  Transmission Date: 20090719
  Serious: Yes (Hospitalization)
  Sender: FDA-Public Use
  Company Number: None

PATIENT
  Age: 79 Year
  Sex: Male
  Weight: 80.5 kg

DRUGS (1)
  1. ROSIGLITAZONE [Suspect]
     Indication: CARDIAC FAILURE CONGESTIVE
     Dosage: 8 MG EVERY DAY PO
     Route: 048
     Dates: start: 20071114, end: 20080707

REACTIONS (4)
  - BLOOD PRESSURE INCREASED [None]
  - CARDIAC FAILURE CONGESTIVE [None]
  - TREATMENT NONCOMPLIANCE [None]
  - WEIGHT INCREASED [None]
